FAERS Safety Report 20297643 (Version 1)
Quarter: 2022Q1

REPORT INFORMATION
  Report Type: Spontaneous
  Country: US (occurrence: US)
  Receive Date: 20220105
  Receipt Date: 20220105
  Transmission Date: 20220423
  Serious: Yes (Hospitalization)
  Sender: FDA-Public Use
  Company Number: US-UNITED THERAPEUTICS-UNT-2021-025351

PATIENT
  Age: 43 Year
  Sex: Female

DRUGS (3)
  1. REMODULIN [Suspect]
     Active Substance: TREPROSTINIL
     Indication: Pulmonary arterial hypertension
     Dosage: UNK, CONTINUING
     Route: 058
     Dates: start: 20200520
  2. REMODULIN [Suspect]
     Active Substance: TREPROSTINIL
     Dosage: 0.0403 ?G/KG, CONTINUING
     Route: 058
  3. REMODULIN [Suspect]
     Active Substance: TREPROSTINIL
     Dosage: 0.0444 ?G/KG, CONTINUING
     Route: 058

REACTIONS (2)
  - Product administration interrupted [Unknown]
  - Chest discomfort [Unknown]

NARRATIVE: CASE EVENT DATE: 20211206
